FAERS Safety Report 10888617 (Version 2)
Quarter: 2019Q4

REPORT INFORMATION
  Report Type: Report from Study
  Country: US (occurrence: US)
  Receive Date: 20150305
  Receipt Date: 20191107
  Transmission Date: 20200122
  Serious: No
  Sender: FDA-Public Use
  Company Number: US-SA-2015SA004403

PATIENT
  Age: 49 Year
  Sex: Male

DRUGS (1)
  1. ELIGLUSTAT. [Suspect]
     Active Substance: ELIGLUSTAT
     Indication: GAUCHER^S DISEASE
     Dosage: 1 DF, BID; DOSE: 84; 2 PILLS PER DAY
     Route: 048
     Dates: start: 20141027

REACTIONS (3)
  - Rash [Recovered/Resolved]
  - Abdominal pain [Not Recovered/Not Resolved]
  - Nasopharyngitis [Recovered/Resolved]

NARRATIVE: CASE EVENT DATE: 201412
